FAERS Safety Report 24099577 (Version 1)
Quarter: 2024Q3

REPORT INFORMATION
  Report Type: Report from Study
  Country: US (occurrence: US)
  Receive Date: 20240716
  Receipt Date: 20240716
  Transmission Date: 20241016
  Serious: Yes (Hospitalization)
  Sender: ABBVIE
  Company Number: US-ABBVIE-5839095

PATIENT
  Age: 35 Year
  Sex: Female

DRUGS (1)
  1. SKYRIZI [Suspect]
     Active Substance: RISANKIZUMAB-RZAA
     Indication: Product used for unknown indication
     Route: 058
     Dates: start: 20230928

REACTIONS (3)
  - Rectal haemorrhage [Not Recovered/Not Resolved]
  - Abdominal pain [Unknown]
  - Inflammation [Unknown]

NARRATIVE: CASE EVENT DATE: 20240711
